FAERS Safety Report 7370348-X (Version None)
Quarter: 2011Q1

REPORT INFORMATION
  Report Type: 
  Country: None (occurrence: None)
  Receive Date: 20110323
  Receipt Date: 20110311
  Transmission Date: 20110831
  Serious: Yes (Hospitalization)
  Sender: FDA-Public Use
  Company Number: US-CELGENEUS-163-21880-11031504

PATIENT
  Sex: Male
  Weight: 83.99 kg

DRUGS (10)
  1. FISH OIL [Concomitant]
     Dosage: 4000 MILLIGRAM
     Route: 048
     Dates: start: 20090101
  2. PLAVIX [Concomitant]
     Dosage: 75 MILLIGRAM
     Route: 048
     Dates: start: 20090401
  3. ASPIRIN [Concomitant]
     Dosage: 325 MILLIGRAM
     Route: 048
     Dates: start: 20090401
  4. ZESTRIL [Concomitant]
     Dosage: 2.5 MILLIGRAM
     Route: 048
     Dates: start: 19980101
  5. TOPROL-XL [Concomitant]
     Dosage: 25 MILLIGRAM
     Route: 048
     Dates: start: 20080101
  6. PERCOCET [Concomitant]
     Dosage: .5 TABLET
     Route: 048
     Dates: start: 20091001
  7. REVLIMID [Suspect]
     Indication: MULTIPLE MYELOMA
     Dosage: 5 MILLIGRAM
     Route: 048
     Dates: start: 20100201
  8. ZOCOR [Concomitant]
     Dosage: 40 MILLIGRAM
     Route: 048
     Dates: start: 20080101
  9. M.V.I. [Concomitant]
     Route: 048
     Dates: start: 20090101
  10. SLEEP AID [Concomitant]
     Route: 048
     Dates: start: 20100715

REACTIONS (1)
  - CHOLELITHIASIS [None]
